FAERS Safety Report 6384071-1 (Version None)
Quarter: 2009Q4

REPORT INFORMATION
  Report Type: 
  Country: None (occurrence: None)
  Receive Date: 20091001
  Receipt Date: 20090921
  Transmission Date: 20100525
  Serious: Yes (Death)
  Sender: FDA-Public Use
  Company Number: GB-GENENTECH-291184

PATIENT
  Age: 7 Year
  Sex: Male

DRUGS (15)
  1. RITUXIMAB [Suspect]
     Indication: ANTI-NEUTROPHIL CYTOPLASMIC ANTIBODY POSITIVE VASCULITIS
     Route: 065
  2. MYCOPHENOLATE MOFETIL [Suspect]
     Indication: IMMUNOSUPPRESSION
     Dosage: 2 G, UNK
     Route: 065
  3. AZATHIOPRINE [Suspect]
     Indication: IMMUNOSUPPRESSION
     Dosage: 75 MG, UNK
     Route: 065
  4. MYCOPHENOLATE SODIUM [Suspect]
     Indication: IMMUNOSUPPRESSION
     Dosage: 2.16 G, UNK
     Route: 065
  5. DEOXYSPERGUALIN [Suspect]
     Indication: IMMUNOSUPPRESSION
     Dosage: UNK
     Route: 065
  6. CYCLOPHOSPHAMIDE [Suspect]
     Indication: IMMUNOSUPPRESSION
     Dosage: 0.9 G, UNK
     Route: 042
  7. METHOTREXATE [Suspect]
     Indication: IMMUNOSUPPRESSION
     Dosage: 20 MG, UNK
     Route: 065
  8. CAMPATH [Suspect]
     Indication: IMMUNOSUPPRESSION
     Route: 065
  9. CYCLOSPORINE [Suspect]
     Indication: IMMUNOSUPPRESSION
     Route: 065
  10. INFLIXIMAB [Suspect]
     Indication: IMMUNOSUPPRESSION
     Route: 065
  11. DAPSONE [Suspect]
     Indication: IMMUNOSUPPRESSION
     Route: 065
  12. IMMUNE GLOBULIN INTRAVENOUS (HUMAN) [Suspect]
     Indication: IMMUNOSUPPRESSION
     Route: 042
  13. ETANERCEPT [Suspect]
     Indication: IMMUNOSUPPRESSION
     Route: 065
  14. AMLODIPINE [Suspect]
     Indication: DRUG USE FOR UNKNOWN INDICATION
     Route: 065
  15. PREDNISOLONE [Suspect]
     Indication: IMMUNOSUPPRESSION
     Dosage: 12.5 MG, UNK
     Route: 065

REACTIONS (2)
  - PULMONARY FIBROSIS [None]
  - RESPIRATORY FAILURE [None]
